FAERS Safety Report 4386558-X (Version None)
Quarter: 2004Q2

REPORT INFORMATION
  Report Type: 
  Country: None (occurrence: None)
  Receive Date: 20040623
  Receipt Date: 20040610
  Transmission Date: 20050107
  Serious: Yes (Hospitalization)
  Sender: FDA-Public Use
  Company Number: 2004039194

PATIENT
  Age: 75 Year
  Sex: Female

DRUGS (4)
  1. ZITHROMAX [Suspect]
     Indication: NASOPHARYNGITIS
     Dosage: 500 MG (1 IN 1 D), ORAL
     Route: 048
     Dates: start: 20040526, end: 20040526
  2. LOXOPROFEN SODIUM (LOXOPROFEN SODIUM) [Concomitant]
  3. PL GRAN (CAFFEINE, PARACETAMOL, PROMETHAZINE METHYLENE DISALICYLATE, S [Concomitant]
  4. TEPRENONE (TEPRENONE) [Concomitant]

REACTIONS (9)
  - ANOREXIA [None]
  - COLITIS ISCHAEMIC [None]
  - HAEMATOCHEZIA [None]
  - HAEMORRHOIDS [None]
  - HEADACHE [None]
  - MELAENA [None]
  - PYREXIA [None]
  - STOOLS WATERY [None]
  - VOMITING [None]
